FAERS Safety Report 12336291 (Version 2)
Quarter: 2016Q2

REPORT INFORMATION
  Report Type: Spontaneous
  Country: US (occurrence: US)
  Receive Date: 20160505
  Receipt Date: 20160624
  Transmission Date: 20160815
  Serious: No
  Sender: FDA-Public Use
  Company Number: US-ASTRAZENECA-2016SE35498

PATIENT
  Age: 26524 Day
  Sex: Female
  Weight: 99.8 kg

DRUGS (4)
  1. MOXIFLOXACIN. [Concomitant]
     Active Substance: MOXIFLOXACIN
     Indication: BRONCHITIS
     Route: 048
     Dates: start: 20160321
  2. SYMBICORT [Suspect]
     Active Substance: BUDESONIDE\FORMOTEROL FUMARATE DIHYDRATE
     Indication: BRONCHITIS
     Dosage: 160-4.5 MCG.,ONE PUFF TWICE A DAY
     Route: 055
     Dates: start: 20160321
  3. SYMBICORT [Suspect]
     Active Substance: BUDESONIDE\FORMOTEROL FUMARATE DIHYDRATE
     Indication: BRONCHITIS
     Dosage: 160-4.5 MCG,ONE PUFF FOUR TIMES A DAY
     Route: 055
     Dates: start: 20160330
  4. LEVOTHYROXINE. [Concomitant]
     Active Substance: LEVOTHYROXINE
     Indication: THYROID DISORDER
     Route: 048

REACTIONS (7)
  - Device failure [Unknown]
  - Wheezing [Unknown]
  - Off label use [Unknown]
  - Cough [Unknown]
  - Product use issue [Unknown]
  - Dyspnoea [Unknown]
  - Intentional product use issue [Unknown]

NARRATIVE: CASE EVENT DATE: 20160321
